FAERS Safety Report 7191322-2 (Version None)
Quarter: 2010Q4

REPORT INFORMATION
  Report Type: 
  Country: None (occurrence: None)
  Receive Date: 20101223
  Receipt Date: 20101216
  Transmission Date: 20110411
  Serious: Yes (Other)
  Sender: FDA-Public Use
  Company Number: CA-ROCHE-742090

PATIENT
  Sex: Female
  Weight: 58 kg

DRUGS (4)
  1. BEVACIZUMAB [Suspect]
     Indication: GLIOBLASTOMA
     Route: 042
     Dates: start: 20101022
  2. VALPROIC ACID [Concomitant]
  3. OMEPRAZOLE [Concomitant]
  4. ETOPOSIDE [Concomitant]
     Route: 048
     Dates: start: 20101101

REACTIONS (3)
  - FATIGUE [None]
  - MALIGNANT NEOPLASM PROGRESSION [None]
  - NECK MASS [None]
